FAERS Safety Report 12581134 (Version 2)
Quarter: 2016Q3

REPORT INFORMATION
  Report Type: Spontaneous
  Country: JP (occurrence: JP)
  Receive Date: 20160721
  Receipt Date: 20160808
  Transmission Date: 20161109
  Serious: Yes (Hospitalization, Other)
  Sender: FDA-Public Use
  Company Number: JP-GLAXOSMITHKLINE-JP2016JPN092089

PATIENT
  Age: 94 Year
  Sex: Female
  Weight: 46 kg

DRUGS (8)
  1. VALACICLOVIR HYDROCHLORIDE [Suspect]
     Active Substance: VALACYCLOVIR HYDROCHLORIDE
     Indication: HERPES ZOSTER
     Dosage: 1000 MG, BID
     Route: 048
     Dates: start: 20160516, end: 20160523
  2. CLARITIN [Concomitant]
     Active Substance: LORATADINE
  3. CELECOX [Concomitant]
     Active Substance: CELECOXIB
  4. SOLANAX [Concomitant]
     Active Substance: ALPRAZOLAM
  5. CARDENALIN [Concomitant]
     Active Substance: DOXAZOSIN MESYLATE
  6. NORVASC [Concomitant]
     Active Substance: AMLODIPINE BESYLATE
  7. MERCAZOLE TABLETS [Concomitant]
  8. CO-DIO [Concomitant]
     Active Substance: HYDROCHLOROTHIAZIDE\VALSARTAN

REACTIONS (2)
  - Altered state of consciousness [Recovering/Resolving]
  - Acute kidney injury [Recovered/Resolved]

NARRATIVE: CASE EVENT DATE: 201605
